FAERS Safety Report 10219076 (Version 1)
Quarter: 2014Q2

REPORT INFORMATION
  Report Type: Spontaneous
  Country: BR (occurrence: BR)
  Receive Date: 20140605
  Receipt Date: 20140605
  Transmission Date: 20141212
  Serious: Yes (Life-Threatening, Other)
  Sender: FDA-Public Use
  Company Number: BR-AMGEN INC.-BRASP2014041676

PATIENT
  Age: 41 Year
  Sex: Female

DRUGS (1)
  1. NEULASTIM [Suspect]
     Indication: BONE MARROW FAILURE
     Dosage: 6 MG, UNK
     Route: 058
     Dates: start: 20140521

REACTIONS (2)
  - No therapeutic response [Unknown]
  - White blood cell count decreased [Unknown]
